FAERS Safety Report 7099416-7 (Version None)
Quarter: 2010Q4

REPORT INFORMATION
  Report Type: 
  Country: None (occurrence: None)
  Receive Date: 20101112
  Receipt Date: 20080916
  Transmission Date: 20110411
  Serious: No
  Sender: FDA-Public Use
  Company Number: US-KINGPHARMUSA00001-K200801085

PATIENT
  Sex: Female
  Weight: 68.027 kg

DRUGS (5)
  1. LEVOXYL [Suspect]
     Indication: HYPOTHYROIDISM
     Dosage: .75 MG, QD
     Route: 048
     Dates: start: 20040101
  2. ACIPHEX [Concomitant]
     Indication: BARRETT'S OESOPHAGUS
  3. CALCIUM CITRATE [Concomitant]
     Indication: OSTEOPENIA
  4. ASPIRIN [Concomitant]
     Indication: PROPHYLAXIS
  5. MULTI-VITAMINS [Concomitant]
     Indication: SUPPLEMENTATION THERAPY

REACTIONS (2)
  - BURNING SENSATION [None]
  - HYPOAESTHESIA ORAL [None]
